FAERS Safety Report 5918388-9 (Version None)
Quarter: 2008Q4

REPORT INFORMATION
  Report Type: 
  Country: None (occurrence: None)
  Receive Date: 20081015
  Receipt Date: 20081006
  Transmission Date: 20090506
  Serious: Yes (Other)
  Sender: FDA-Public Use
  Company Number: US-RANBAXY-2008US-18585

PATIENT

DRUGS (2)
  1. LORATADINE [Suspect]
     Indication: NASAL CONGESTION
     Dosage: 10 MG, UNK
     Route: 048
  2. LORATADINE [Suspect]
     Indication: HYPERSENSITIVITY

REACTIONS (2)
  - CHEST PAIN [None]
  - DRUG INEFFECTIVE [None]
